FAERS Safety Report 7688303-9 (Version None)
Quarter: 2011Q3

REPORT INFORMATION
  Report Type: 
  Country: None (occurrence: None)
  Receive Date: 20110817
  Receipt Date: 20110104
  Transmission Date: 20111222
  Serious: No
  Sender: FDA-Public Use
  Company Number: US-KINGPHARMUSA00001-K201100047

PATIENT
  Age: 58 Year
  Sex: Female
  Weight: 58.957 kg

DRUGS (6)
  1. VITAMIN TAB [Concomitant]
  2. LEVOXYL [Suspect]
     Dosage: 75 MCG, QHS
     Route: 048
  3. THYROID PREPARATIONS [Concomitant]
  4. LEVOXYL [Suspect]
     Dosage: 50 MCG, QHS
     Route: 048
     Dates: start: 20060101
  5. LEVOXYL [Suspect]
     Indication: AUTOIMMUNE THYROIDITIS
     Dosage: 88 MCG, QHS
     Route: 048
     Dates: start: 20010101
  6. CYTOMEL [Suspect]
     Dosage: UNK
     Route: 048

REACTIONS (24)
  - HUNGER [None]
  - MALAISE [None]
  - FEELING JITTERY [None]
  - ANXIETY [None]
  - DIARRHOEA [None]
  - HEADACHE [None]
  - MYALGIA [None]
  - FOOD CRAVING [None]
  - PALPITATIONS [None]
  - FEELING COLD [None]
  - SOMNOLENCE [None]
  - HYPOTHYROIDISM [None]
  - FATIGUE [None]
  - DYSPNOEA [None]
  - ABDOMINAL PAIN UPPER [None]
  - DRY EYE [None]
  - INFLUENZA LIKE ILLNESS [None]
  - ABDOMINAL DISTENSION [None]
  - FEELING ABNORMAL [None]
  - INSOMNIA [None]
  - FLUSHING [None]
  - WEIGHT INCREASED [None]
  - WEIGHT LOSS POOR [None]
  - ASTHENIA [None]
